FAERS Safety Report 19156944 (Version 2)
Quarter: 2021Q2

REPORT INFORMATION
  Report Type: Report from Study
  Country: AR (occurrence: AR)
  Receive Date: 20210420
  Receipt Date: 20210504
  Transmission Date: 20210717
  Serious: Yes (Other)
  Sender: FDA-Public Use
  Company Number: AR-JNJFOC-20210246555

PATIENT
  Age: 60 Year
  Sex: Female

DRUGS (3)
  1. SPRAVATO [Suspect]
     Active Substance: ESKETAMINE
     Indication: DEPRESSION
     Dates: start: 20201228
  2. SPRAVATO [Suspect]
     Active Substance: ESKETAMINE
  3. SPRAVATO [Suspect]
     Active Substance: ESKETAMINE

REACTIONS (8)
  - Hallucination [Unknown]
  - Gait disturbance [Unknown]
  - Agoraphobia [Not Recovered/Not Resolved]
  - Product complaint [Unknown]
  - Drug ineffective [Unknown]
  - Dizziness [Unknown]
  - Eye disorder [Unknown]
  - Fatigue [Unknown]

NARRATIVE: CASE EVENT DATE: 20210330
